FAERS Safety Report 15835060 (Version 1)
Quarter: 2019Q1

REPORT INFORMATION
  Report Type: Spontaneous
  Country: US (occurrence: US)
  Receive Date: 20190116
  Receipt Date: 20190116
  Transmission Date: 20190417
  Serious: No
  Sender: FDA-Public Use
  Company Number: US-CHILTERN-US-2018-000170

PATIENT
  Age: 90 Year
  Sex: Female

DRUGS (4)
  1. RHOPRESSA [Suspect]
     Active Substance: NETARSUDIL MESYLATE
     Dosage: 1 GTT BOTH EYES MID-DAY
     Route: 047
     Dates: start: 201810
  2. AZOPT [Concomitant]
     Active Substance: BRINZOLAMIDE
     Indication: GLAUCOMA
     Dosage: UNK, BID
     Route: 047
  3. RHOPRESSA [Suspect]
     Active Substance: NETARSUDIL MESYLATE
     Indication: GLAUCOMA
     Dosage: 1 GTT BOTH EYES MID-DAY
     Route: 047
     Dates: start: 201809
  4. XALATAN [Concomitant]
     Active Substance: LATANOPROST
     Indication: GLAUCOMA
     Dosage: UNK, QD
     Route: 047

REACTIONS (2)
  - Fatigue [Recovered/Resolved]
  - Instillation site pain [Recovered/Resolved]
